FAERS Safety Report 21574530 (Version 1)
Quarter: 2022Q4

REPORT INFORMATION
  Report Type: Spontaneous
  Country: US (occurrence: None)
  Receive Date: 20221109
  Receipt Date: 20221109
  Transmission Date: 20230113
  Serious: Yes (Death, Hospitalization)
  Sender: FDA-Public Use
  Company Number: None

PATIENT
  Sex: Male
  Weight: 71.7 kg

DRUGS (1)
  1. RITUXIMAB [Suspect]
     Active Substance: RITUXIMAB
     Dates: end: 20220315

REACTIONS (6)
  - COVID-19 [None]
  - Respiratory failure [None]
  - Sepsis [None]
  - COVID-19 pneumonia [None]
  - Metabolic encephalopathy [None]
  - Dementia [None]

NARRATIVE: CASE EVENT DATE: 20220622
